FAERS Safety Report 12556818 (Version 5)
Quarter: 2016Q4

REPORT INFORMATION
  Report Type: Spontaneous
  Country: US (occurrence: US)
  Receive Date: 20160714
  Receipt Date: 20161116
  Transmission Date: 20170207
  Serious: No
  Sender: FDA-Public Use
  Company Number: US-PFIZER INC-2016313832

PATIENT
  Age: 54 Year
  Sex: Female
  Weight: 61 kg

DRUGS (11)
  1. GABAPENTIN. [Suspect]
     Active Substance: GABAPENTIN
     Indication: HIP FRACTURE
  2. GABAPENTIN. [Suspect]
     Active Substance: GABAPENTIN
     Indication: FEMUR FRACTURE
     Dosage: 600 MG, 3X/DAY
     Dates: end: 20160618
  3. OXYCODONE [Concomitant]
     Active Substance: OXYCODONE
     Dosage: 25 UNIT UNSPECIFIED, LAST 4 YEARS
  4. ETODOLAC. [Concomitant]
     Active Substance: ETODOLAC
     Dosage: 400 MG, UNK
  5. GABAPENTIN. [Suspect]
     Active Substance: GABAPENTIN
     Indication: NEURALGIA
  6. HYDROCHLOROTHIAZIDE. [Concomitant]
     Active Substance: HYDROCHLOROTHIAZIDE
     Dosage: 125 UNIT UNSPECIFIED, LAST 4 YEARS
  7. GABAPENTIN. [Suspect]
     Active Substance: GABAPENTIN
     Indication: NEUROPATHY PERIPHERAL
     Dosage: 200 IN THE MORNING, 100 IN THE LUNCH AND 200 AT NIGHT
  8. LYRICA [Concomitant]
     Active Substance: PREGABALIN
     Dosage: 250 MG, DAILY (50 MG X 5 A DAY)
  9. MORPHINE [Concomitant]
     Active Substance: MORPHINE
     Dosage: 15 MG, UNK
  10. PAROXETINE. [Concomitant]
     Active Substance: PAROXETINE
     Dosage: 20 MG, 1X/DAY (LAST 4 YRS)
  11. GABAPENTIN. [Suspect]
     Active Substance: GABAPENTIN
     Indication: PAIN
     Dosage: 100 MG, DAILY
     Dates: start: 2013

REACTIONS (6)
  - Somnolence [Recovered/Resolved]
  - Intentional product use issue [Recovered/Resolved]
  - Activities of daily living impaired [Recovered/Resolved]
  - Osteoporosis [Recovered/Resolved]
  - Fatigue [Recovered/Resolved]
  - Drug ineffective for unapproved indication [Recovered/Resolved]
